FAERS Safety Report 6836461-8 (Version None)
Quarter: 2010Q3

REPORT INFORMATION
  Report Type: 
  Country: None (occurrence: None)
  Receive Date: 20100713
  Receipt Date: 20100701
  Transmission Date: 20110219
  Serious: Yes (Death, Other)
  Sender: FDA-Public Use
  Company Number: JP-BRISTOL-MYERS SQUIBB COMPANY-15179435

PATIENT
  Age: 70 Year
  Sex: Male

DRUGS (3)
  1. PARAPLATIN [Suspect]
     Indication: OESOPHAGEAL CARCINOMA
     Route: 041
  2. ETOPOSIDE [Suspect]
     Indication: OESOPHAGEAL CARCINOMA
  3. RADIATION THERAPY [Suspect]
     Indication: OESOPHAGEAL CARCINOMA
     Dosage: 1 DF= 61.4 GRAY

REACTIONS (3)
  - ACUTE MYELOID LEUKAEMIA [None]
  - BONE MARROW FAILURE [None]
  - OESOPHAGITIS [None]
